FAERS Safety Report 11135687 (Version 1)
Quarter: 2015Q2

REPORT INFORMATION
  Report Type: Spontaneous
  Country: US (occurrence: US)
  Receive Date: 20150526
  Receipt Date: 20150526
  Transmission Date: 20150821
  Serious: Yes (Hospitalization, Other)
  Sender: FDA-Public Use
  Company Number: US-PFIZER INC-2015170963

PATIENT
  Age: 19 Year
  Sex: Male
  Weight: 66 kg

DRUGS (4)
  1. MEROPENEM. [Suspect]
     Active Substance: MEROPENEM
     Indication: LOCALISED INFECTION
     Dosage: UNKNOWN DOSE, 4 IN 1 D
     Route: 042
     Dates: start: 20150226, end: 201502
  2. HUMIRA [Suspect]
     Active Substance: ADALIMUMAB
     Indication: CROHN^S DISEASE
     Dosage: 40 MG, 1 IN 2 WK
     Route: 058
     Dates: start: 201306, end: 2014
  3. KEPPRA [Suspect]
     Active Substance: LEVETIRACETAM
     Indication: SEIZURE
     Dosage: UNK
     Dates: start: 201406
  4. DILANTIN [Suspect]
     Active Substance: PHENYTOIN
     Indication: SEIZURE
     Dosage: UNK
     Dates: start: 201406

REACTIONS (18)
  - Pancreatitis [Recovered/Resolved]
  - Weight decreased [Unknown]
  - Crohn^s disease [Unknown]
  - Gastrointestinal fistula [Unknown]
  - Condition aggravated [Unknown]
  - Blood pressure increased [Unknown]
  - Vomiting [Recovered/Resolved]
  - Iron deficiency [Unknown]
  - Localised infection [Unknown]
  - Spleen disorder [Unknown]
  - Posterior reversible encephalopathy syndrome [Recovered/Resolved]
  - Drug ineffective [Unknown]
  - Seizure [Recovered/Resolved]
  - Diverticulitis [Unknown]
  - Chills [Recovered/Resolved]
  - Appendix disorder [Unknown]
  - Abdominal abscess [Unknown]
  - Malnutrition [Unknown]

NARRATIVE: CASE EVENT DATE: 2013
